FAERS Safety Report 6914397-1 (Version None)
Quarter: 2010Q3

REPORT INFORMATION
  Report Type: 
  Country: None (occurrence: None)
  Receive Date: 20100809
  Receipt Date: 20100730
  Transmission Date: 20110219
  Serious: Yes (Hospitalization)
  Sender: FDA-Public Use
  Company Number: AU-ABBOTT-10P-008-0660313-01

PATIENT
  Sex: Female
  Weight: 54 kg

DRUGS (13)
  1. HUMIRA [Suspect]
     Indication: CROHN'S DISEASE
     Route: 058
     Dates: start: 20090508, end: 20100329
  2. HUMIRA [Suspect]
     Route: 058
     Dates: start: 20100602
  3. SINUTAB [Concomitant]
     Indication: SINUS DISORDER
     Dates: start: 19800101
  4. SUDAFED 12 HOUR [Concomitant]
     Indication: SINUS DISORDER
     Dates: start: 20090101
  5. NASONEX [Concomitant]
     Indication: NASAL CONGESTION
     Dosage: 2 PUFFS EACH NOSTRIL
     Dates: start: 20080101
  6. CENTRUM SILVER 50 + [Concomitant]
     Indication: VITAMIN SUPPLEMENTATION
     Dates: start: 20030101
  7. CALTRATE [Concomitant]
     Indication: MINERAL SUPPLEMENTATION
     Dosage: 600MG X 2 QD
     Dates: start: 20030101
  8. FISH OIL [Concomitant]
     Indication: VITAMIN SUPPLEMENTATION
     Dosage: 1000MG X 3 QD
     Dates: start: 20050101
  9. OSTELIN [Concomitant]
     Indication: VITAMIN SUPPLEMENTATION
     Dates: start: 20090101
  10. GLUCOSAMINE [Concomitant]
     Indication: VITAMIN SUPPLEMENTATION
     Dates: start: 20070101
  11. MAGNESIUM [Concomitant]
     Indication: VITAMIN SUPPLEMENTATION
     Dates: start: 20050101
  12. PAXAM [Concomitant]
     Indication: ANXIETY
     Dates: start: 20090101
  13. ZINC AND CASTOR OIL [Concomitant]
     Indication: EXCORIATION
     Route: 061
     Dates: start: 20091005

REACTIONS (1)
  - COLECTOMY [None]
